FAERS Safety Report 25270399 (Version 2)
Quarter: 2025Q2

REPORT INFORMATION
  Report Type: Report from Study
  Country: CN (occurrence: CN)
  Receive Date: 20250505
  Receipt Date: 20250507
  Transmission Date: 20250717
  Serious: Yes (Hospitalization, Other)
  Sender: PFIZER
  Company Number: CN-TAKEDA-2022TUS097141

PATIENT
  Age: 33 Year
  Sex: Female
  Weight: 51 kg

DRUGS (17)
  1. BRENTUXIMAB VEDOTIN [Suspect]
     Active Substance: BRENTUXIMAB VEDOTIN
     Indication: Diffuse large B-cell lymphoma
     Route: 041
     Dates: start: 20221126, end: 20230307
  2. BRENTUXIMAB VEDOTIN [Suspect]
     Active Substance: BRENTUXIMAB VEDOTIN
     Route: 041
     Dates: start: 20230330
  3. PREDNISONE [Suspect]
     Active Substance: PREDNISONE
     Indication: Diffuse large B-cell lymphoma
     Dosage: 100 MILLIGRAM, BID
     Route: 048
     Dates: start: 20221126, end: 20221227
  4. DOXORUBICIN HYDROCHLORIDE [Suspect]
     Active Substance: DOXORUBICIN HYDROCHLORIDE
     Indication: Diffuse large B-cell lymphoma
     Dosage: 40 MILLIGRAM, QD
     Route: 042
     Dates: start: 20221126, end: 20230422
  5. CYCLOPHOSPHAMIDE [Suspect]
     Active Substance: CYCLOPHOSPHAMIDE
     Indication: Diffuse large B-cell lymphoma
     Dosage: 1140 MILLIGRAM, QD
     Route: 042
     Dates: start: 20221126, end: 20221126
  6. OMEPRAZOLE [Concomitant]
     Active Substance: OMEPRAZOLE
     Indication: Prophylaxis
     Dosage: UNK UNK, BID
     Route: 048
     Dates: start: 20221127
  7. ACETYLCYSTEINE [Concomitant]
     Active Substance: ACETYLCYSTEINE
     Indication: Prophylaxis
     Dosage: UNK UNK, BID
     Route: 048
     Dates: start: 20221127
  8. LEVOFLOXACIN [Concomitant]
     Active Substance: LEVOFLOXACIN
     Indication: Infection prophylaxis
     Dosage: UNK UNK, QD
     Route: 048
     Dates: start: 20221127, end: 20230511
  9. METHYLPREDNISOLONE [Concomitant]
     Active Substance: METHYLPREDNISOLONE
     Indication: Prophylaxis
     Route: 065
  10. PROMETHAZINE [Concomitant]
     Active Substance: PROMETHAZINE HYDROCHLORIDE
     Indication: Prophylaxis
     Route: 065
  11. BENZBROMARONE [Concomitant]
     Active Substance: BENZBROMARONE
     Indication: Prophylaxis
     Route: 065
  12. SODIUM BICARBONATE [Concomitant]
     Active Substance: SODIUM BICARBONATE
     Indication: Urine alkalinisation therapy
     Route: 065
  13. GINKGO [Concomitant]
     Active Substance: GINKGO
     Indication: Nutritional supplementation
     Route: 065
  14. LEVOCARNITINE [Concomitant]
     Active Substance: LEVOCARNITINE
     Indication: Prophylaxis
     Route: 065
  15. PHOSPHOLIPID [Concomitant]
     Active Substance: PHOSPHOLIPID
     Dosage: 456 MILLIGRAM, TID
     Route: 065
  16. COMPOUND LIQUORICE [Concomitant]
     Indication: COVID-19
     Dosage: 10 MILLILITER, TID
     Route: 048
  17. LACTULOSE [Concomitant]
     Active Substance: LACTULOSE
     Indication: Constipation
     Dosage: 10 GRAM, BID
     Route: 048

REACTIONS (5)
  - Varicella [Recovered/Resolved]
  - Pneumonia [Unknown]
  - Peripheral sensory neuropathy [Not Recovered/Not Resolved]
  - COVID-19 [Recovered/Resolved]
  - Off label use [Recovered/Resolved]

NARRATIVE: CASE EVENT DATE: 20221126
